FAERS Safety Report 8758974 (Version 2)
Quarter: 2012Q4

REPORT INFORMATION
  Report Type: 
  Country: US (occurrence: US)
  Receive Date: 20120829
  Receipt Date: 20120829
  Transmission Date: 20130627
  Serious: Yes (Other)
  Sender: FDA-Public Use
  Company Number: US-009507513-2012SP021636

PATIENT

DRUGS (4)
  1. PEGINTRON [Suspect]
     Indication: HEPATITIS C
     Dosage: UNK UNK, Unknown
     Route: 065
     Dates: start: 20120302, end: 20120530
  2. REBETOL [Suspect]
     Indication: HEPATITIS C
     Dosage: UNK UNK, Unknown
     Route: 065
     Dates: start: 20120302, end: 20120427
  3. TELAPREVIR [Concomitant]
     Indication: HEPATITIS C
     Dosage: UNK UNK, Unknown
     Route: 065
     Dates: start: 20120302, end: 20120530
  4. CYANOCOBALAMIN [Concomitant]
     Dosage: UNK UNK, Unknown
     Route: 065

REACTIONS (6)
  - Haemoglobin decreased [Unknown]
  - Fatigue [Unknown]
  - Dyspnoea [Unknown]
  - Insomnia [Unknown]
  - Alopecia [Unknown]
  - Hepatitis C RNA increased [Unknown]
